FAERS Safety Report 6641335-1 (Version None)
Quarter: 2010Q1

REPORT INFORMATION
  Report Type: 
  Country: None (occurrence: None)
  Receive Date: 20100318
  Receipt Date: 20100312
  Transmission Date: 20100710
  Serious: Yes (Hospitalization)
  Sender: FDA-Public Use
  Company Number: US-BAYER-201013123BCC

PATIENT
  Age: 23 Month
  Sex: Male

DRUGS (2)
  1. ASPIRIN [Suspect]
     Indication: ACCIDENTAL DRUG INTAKE BY CHILD
     Route: 048
     Dates: start: 20091027, end: 20091027
  2. LISINOPRIL [Concomitant]
     Indication: ACCIDENTAL DRUG INTAKE BY CHILD
     Route: 048
     Dates: start: 20091027, end: 20091027

REACTIONS (1)
  - ACCIDENTAL DRUG INTAKE BY CHILD [None]
